FAERS Safety Report 5039871-7 (Version None)
Quarter: 2006Q2

REPORT INFORMATION
  Report Type: 
  Country: None (occurrence: None)
  Receive Date: 20060601
  Receipt Date: 20060109
  Transmission Date: 20061013
  Serious: No
  Sender: FDA-Public Use
  Company Number: 2006PV006869

PATIENT
  Age: 72 Year
  Sex: Male

DRUGS (4)
  1. BYETTA [Suspect]
     Indication: DRUG USE FOR UNKNOWN INDICATION
     Dosage: SEE IMAGE
     Route: 058
     Dates: start: 20051101
  2. GLUCOPHAGE [Concomitant]
  3. LANTUS [Concomitant]
  4. NEXIUM [Concomitant]

REACTIONS (5)
  - DECREASED APPETITE [None]
  - HIATUS HERNIA [None]
  - INJECTION SITE HAEMORRHAGE [None]
  - NAUSEA [None]
  - VOMITING [None]
